FAERS Safety Report 7914214-7 (Version None)
Quarter: 2011Q4

REPORT INFORMATION
  Report Type: 
  Country: None (occurrence: None)
  Receive Date: 20111115
  Receipt Date: 20111107
  Transmission Date: 20120403
  Serious: Yes (Other)
  Sender: FDA-Public Use
  Company Number: US-US-EMD SERONO, INC.-230564K08USA

PATIENT
  Sex: Female

DRUGS (2)
  1. OTHER UNSPECIFIED MEDICATIONS [Concomitant]
  2. REBIF [Suspect]
     Indication: MULTIPLE SCLEROSIS
     Route: 058
     Dates: start: 20060914

REACTIONS (4)
  - MALAISE [None]
  - INJECTION SITE PAIN [None]
  - PANCREATITIS CHRONIC [None]
  - PANCREAS DIVISUM [None]
